FAERS Safety Report 5507573-6 (Version None)
Quarter: 2007Q4

REPORT INFORMATION
  Report Type: 
  Country: None (occurrence: None)
  Receive Date: 20071102
  Receipt Date: 20071023
  Transmission Date: 20080405
  Serious: Yes (Death)
  Sender: FDA-Public Use
  Company Number: 062-21880-07070715

PATIENT
  Age: 68 Year
  Sex: Male

DRUGS (7)
  1. REVLIMID [Suspect]
     Indication: MYELODYSPLASTIC SYNDROME
     Dosage: 5 MG, EVERY 2 DAYS, ORAL
     Route: 048
     Dates: start: 20070614, end: 20070627
  2. TRANSFUSIONS (RED BLOOD CELLS) [Concomitant]
  3. EXJADE [Concomitant]
  4. NOVALGIN-GUTTAE (METAMIZOLE SODIUM) [Concomitant]
  5. PREDNISOLUT (PREDNISOLONE SODIUM SUCCINATE) [Concomitant]
  6. IBUPROFEN [Concomitant]
  7. MST (MORPHINE SULFATE) (TABLETS) [Concomitant]

REACTIONS (11)
  - DIARRHOEA [None]
  - FALL [None]
  - HAEMOGLOBIN DECREASED [None]
  - HEADACHE [None]
  - HEPATIC CIRRHOSIS [None]
  - HEPATOSPLENOMEGALY [None]
  - NAUSEA [None]
  - PAIN [None]
  - RASH [None]
  - THROMBOCYTOPENIA [None]
  - VOMITING [None]
